FAERS Safety Report 9145421 (Version 2)
Quarter: 2013Q2

REPORT INFORMATION
  Report Type: Spontaneous
  Country: US (occurrence: US)
  Receive Date: 20130307
  Receipt Date: 20130408
  Transmission Date: 20140414
  Serious: Yes (Other)
  Sender: FDA-Public Use
  Company Number: US-JNJFOC-20130216325

PATIENT
  Sex: Female

DRUGS (11)
  1. XARELTO [Suspect]
     Indication: CEREBROVASCULAR ACCIDENT PROPHYLAXIS
     Route: 048
     Dates: start: 20130124, end: 20130207
  2. XARELTO [Suspect]
     Indication: ATRIAL FIBRILLATION
     Route: 048
     Dates: start: 20130124, end: 20130207
  3. COZAAR [Concomitant]
     Indication: BLOOD PRESSURE
     Dates: start: 20110405
  4. SPIRONOLACTONE + HYDROCHLOROTHIAZIDE [Concomitant]
     Indication: BLOOD PRESSURE
     Route: 065
     Dates: start: 20110405
  5. POTASSIUM [Concomitant]
     Indication: ATRIAL FIBRILLATION
     Route: 065
     Dates: start: 20031027
  6. POTASSIUM [Concomitant]
     Indication: BLOOD PRESSURE
     Route: 065
     Dates: start: 20031027
  7. SOTALOL [Concomitant]
     Indication: ATRIAL FIBRILLATION
     Route: 065
     Dates: start: 20130124
  8. PRADAXA [Concomitant]
     Indication: CEREBROVASCULAR ACCIDENT PROPHYLAXIS
     Route: 065
     Dates: start: 20110330, end: 20130123
  9. PRADAXA [Concomitant]
     Indication: CEREBROVASCULAR ACCIDENT PROPHYLAXIS
     Route: 065
     Dates: start: 20130208
  10. PRADAXA [Concomitant]
     Indication: ATRIAL FIBRILLATION
     Route: 065
     Dates: start: 20110330, end: 20130123
  11. PRADAXA [Concomitant]
     Indication: ATRIAL FIBRILLATION
     Route: 065
     Dates: start: 20130208

REACTIONS (1)
  - Vision blurred [Not Recovered/Not Resolved]
